FAERS Safety Report 6608365-7 (Version None)
Quarter: 2010Q1

REPORT INFORMATION
  Report Type: 
  Country: None (occurrence: None)
  Receive Date: 20100301
  Receipt Date: 20100217
  Transmission Date: 20100710
  Serious: Yes (Death, Hospitalization, Other)
  Sender: FDA-Public Use
  Company Number: US-PFIZER INC-2009186007

PATIENT
  Sex: Male
  Weight: 95 kg

DRUGS (19)
  1. DILANTIN [Suspect]
     Indication: CONVULSION
     Dosage: 100 MG, UNK
     Route: 048
     Dates: start: 20070501
  2. TOPROL-XL [Concomitant]
     Dosage: 50 MG, UNK
  3. ADVAIR DISKUS 100/50 [Concomitant]
  4. COMBIVENT [Concomitant]
     Dosage: UNK
     Dates: start: 20070622
  5. SIMVASTATIN [Concomitant]
     Dosage: 40 MG, UNK
  6. ACETYLSALICYLIC ACID [Concomitant]
     Dosage: 81 MG, UNK
  7. DECADRON [Concomitant]
  8. LIPITOR [Concomitant]
     Dosage: 40 MG, UNK
     Dates: start: 20070622
  9. CETIRIZINE [Concomitant]
     Dosage: 10 MG, UNK
     Dates: start: 20070623
  10. HYDROCORTISONE [Concomitant]
     Dosage: UNK
     Dates: start: 20070622
  11. OXANDRIN [Concomitant]
     Dosage: 10 MG, UNK
     Dates: start: 20070622
  12. SPIRIVA [Concomitant]
     Dosage: 36MCG
     Dates: start: 20070623
  13. ATARAX [Concomitant]
     Dosage: UNK
     Dates: start: 20070622
  14. LORAZEPAM [Concomitant]
     Dosage: 1 MG, UNK
     Dates: start: 20070622
  15. DARVOCET [Concomitant]
     Dosage: UNK
     Dates: start: 20070622
  16. AZITHROMYCIN [Concomitant]
     Dosage: 250 MG, UNK
     Dates: start: 20070623
  17. DOXYCYCLINE [Concomitant]
     Dosage: 100 MG, UNK
     Dates: start: 20070623
  18. PREDNISOLONE [Concomitant]
     Dosage: 60 MG, UNK
     Dates: start: 20070622
  19. PHENYTOIN [Concomitant]
     Dosage: 200 MG, UNK
     Dates: start: 20070623

REACTIONS (2)
  - STEVENS-JOHNSON SYNDROME [None]
  - TOXIC EPIDERMAL NECROLYSIS [None]
